FAERS Safety Report 4836729-0 (Version None)
Quarter: 2005Q4

REPORT INFORMATION
  Report Type: 
  Country: None (occurrence: None)
  Receive Date: 20051123
  Receipt Date: 20051117
  Transmission Date: 20060501
  Serious: Yes (Hospitalization)
  Sender: FDA-Public Use
  Company Number: FR-ABBOTT-05P-056-0317639-00

PATIENT
  Sex: Male

DRUGS (4)
  1. RITONAVIR SOFT GELATIN CAPSULES [Suspect]
     Indication: HIV INFECTION
     Route: 048
     Dates: start: 20040702
  2. TIPRANAVIR [Concomitant]
     Indication: HIV INFECTION
     Route: 048
     Dates: start: 20040702
  3. VIREAD [Concomitant]
     Indication: HIV INFECTION
     Route: 048
  4. LAMIVUDINE [Concomitant]
     Indication: HIV INFECTION
     Route: 048

REACTIONS (2)
  - HAEMORRHOID OPERATION [None]
  - WART EXCISION [None]
